FAERS Safety Report 5424251-2 (Version None)
Quarter: 2007Q3

REPORT INFORMATION
  Report Type: 
  Country: None (occurrence: None)
  Receive Date: 20070731
  Receipt Date: 20070601
  Transmission Date: 20080115
  Serious: No
  Sender: FDA-Public Use
  Company Number: US200706000492

PATIENT
  Age: 52 Year
  Sex: Female

DRUGS (7)
  1. BYETTA [Suspect]
     Indication: TYPE 2 DIABETES MELLITUS
     Dosage: 5  UG, 2/D, SUBCUTANEOUS, 10 UG, 2/D, SUBCUTANEOUS, 5 MG, 2/D, SUBCUTANEOUS, 10 UG, 2/D, SUBCUTANEOU
     Route: 058
     Dates: start: 20070401, end: 20070501
  2. BYETTA [Suspect]
     Indication: TYPE 2 DIABETES MELLITUS
     Dosage: 5  UG, 2/D, SUBCUTANEOUS, 10 UG, 2/D, SUBCUTANEOUS, 5 MG, 2/D, SUBCUTANEOUS, 10 UG, 2/D, SUBCUTANEOU
     Route: 058
     Dates: start: 20070401, end: 20070501
  3. BYETTA [Suspect]
     Indication: TYPE 2 DIABETES MELLITUS
     Dosage: 5  UG, 2/D, SUBCUTANEOUS, 10 UG, 2/D, SUBCUTANEOUS, 5 MG, 2/D, SUBCUTANEOUS, 10 UG, 2/D, SUBCUTANEOU
     Route: 058
     Dates: start: 20070501, end: 20070501
  4. BYETTA [Suspect]
     Indication: TYPE 2 DIABETES MELLITUS
     Dosage: 5  UG, 2/D, SUBCUTANEOUS, 10 UG, 2/D, SUBCUTANEOUS, 5 MG, 2/D, SUBCUTANEOUS, 10 UG, 2/D, SUBCUTANEOU
     Route: 058
     Dates: start: 20070527
  5. EXENATIDE (EXENATIDE PEN) [Concomitant]
  6. GLIPIZIDE [Concomitant]
  7. ACTOS [Concomitant]

REACTIONS (5)
  - BLOOD GLUCOSE DECREASED [None]
  - BLOOD GLUCOSE INCREASED [None]
  - DECREASED APPETITE [None]
  - NAUSEA [None]
  - TREMOR [None]
